FAERS Safety Report 6385244-4 (Version None)
Quarter: 2009Q4

REPORT INFORMATION
  Report Type: 
  Country: None (occurrence: None)
  Receive Date: 20091002
  Receipt Date: 20090701
  Transmission Date: 20100525
  Serious: No
  Sender: FDA-Public Use
  Company Number: US-ASTRAZENECA-2007UW23454

PATIENT
  Age: 62 Year
  Sex: Female
  Weight: 59 kg

DRUGS (2)
  1. ARIMIDEX [Suspect]
     Indication: BREAST CANCER
     Route: 048
     Dates: start: 20071006
  2. VYTORIN [Concomitant]
     Indication: BLOOD CHOLESTEROL INCREASED
     Dates: start: 20040101

REACTIONS (7)
  - ARTHRALGIA [None]
  - BONE PAIN [None]
  - CARPAL TUNNEL SYNDROME [None]
  - FATIGUE [None]
  - RASH [None]
  - VITAMIN D DECREASED [None]
  - WEIGHT INCREASED [None]
